FAERS Safety Report 10202617 (Version 1)
Quarter: 2014Q2

REPORT INFORMATION
  Report Type: Spontaneous
  Country: US (occurrence: US)
  Receive Date: 20140528
  Receipt Date: 20140528
  Transmission Date: 20141212
  Serious: Yes (Other)
  Sender: FDA-Public Use
  Company Number: US-ACTAVIS-2014-10676

PATIENT
  Age: 45 Year
  Sex: Male
  Weight: 141 kg

DRUGS (4)
  1. LISINOPRIL (WATSON LABORATORIES) [Suspect]
     Indication: HYPERTENSION
     Dosage: 40 MG, DAILY
     Route: 065
  2. CLONIDINE [Concomitant]
     Indication: PRODUCT USED FOR UNKNOWN INDICATION
     Dosage: 0.2 MG, DAILY
     Route: 065
  3. METOPROLOL [Concomitant]
     Indication: HYPERTENSION
     Dosage: 100 MG, BID
     Route: 065
  4. HYDRALAZINE [Concomitant]
     Indication: HYPERTENSION
     Dosage: 100 MG, UNK
     Route: 065

REACTIONS (5)
  - Renal failure [Not Recovered/Not Resolved]
  - Asthma [Recovered/Resolved]
  - Peripheral swelling [Not Recovered/Not Resolved]
  - Cough [Recovered/Resolved]
  - Respiration abnormal [Recovered/Resolved]
